FAERS Safety Report 15371054 (Version 4)
Quarter: 2018Q4

REPORT INFORMATION
  Report Type: Spontaneous
  Country: JP (occurrence: JP)
  Receive Date: 20180911
  Receipt Date: 20181025
  Transmission Date: 20190204
  Serious: Yes (Other)
  Sender: FDA-Public Use
  Company Number: JP-GLAXOSMITHKLINE-JP2018JPN160897

PATIENT
  Age: 84 Year
  Sex: Male
  Weight: 57 kg

DRUGS (3)
  1. AMBROXOL HYDROCHLORIDE OD [Concomitant]
     Indication: BRONCHITIS CHRONIC
  2. AMBROXOL HYDROCHLORIDE OD [Concomitant]
     Indication: PRODUCTIVE COUGH
     Dosage: 45 MG, 1D
     Dates: start: 20180713
  3. RELVAR ELLIPTA [Suspect]
     Active Substance: FLUTICASONE FUROATE\VILANTEROL TRIFENATATE
     Indication: BRONCHITIS CHRONIC
     Dosage: 200 ?G, QD
     Route: 055
     Dates: start: 20180810, end: 20180828

REACTIONS (4)
  - Oropharyngeal discomfort [Recovered/Resolved]
  - Coating in mouth [Recovering/Resolving]
  - Oesophageal candidiasis [Recovering/Resolving]
  - Dysphonia [Recovered/Resolved]

NARRATIVE: CASE EVENT DATE: 20180828
